FAERS Safety Report 4457780-9 (Version None)
Quarter: 2004Q3

REPORT INFORMATION
  Report Type: 
  Country: None (occurrence: None)
  Receive Date: 20040917
  Receipt Date: 20040129
  Transmission Date: 20050211
  Serious: Yes (Other)
  Sender: FDA-Public Use
  Company Number: NSADSS2003002530

PATIENT
  Age: 44 Year
  Sex: Female
  Weight: 77.1115 kg

DRUGS (3)
  1. TOPAMAX [Suspect]
     Indication: MIGRAINE
     Dosage: 25 MG, ORAL
     Route: 048
     Dates: start: 20021129, end: 20021205
  2. TOPROL (METOPROLOL SUCCINATE) [Concomitant]
  3. ZOMIG [Concomitant]

REACTIONS (1)
  - ANGLE CLOSURE GLAUCOMA [None]
